FAERS Safety Report 9832007 (Version 1)
Quarter: 2014Q1

REPORT INFORMATION
  Report Type: Spontaneous
  Country: US (occurrence: US)
  Receive Date: 20140121
  Receipt Date: 20140121
  Transmission Date: 20141002
  Serious: No
  Sender: FDA-Public Use
  Company Number: US-BAYER-2014-002875

PATIENT
  Age: 61 Year
  Sex: Female

DRUGS (10)
  1. ALEVE CAPLET [Suspect]
     Indication: MYALGIA
  2. BAYER ASPIRIN REGIMEN ADULT LOW STRENGTH [Suspect]
     Dosage: 81 MG, UNK
  3. AVONEX [Concomitant]
  4. AMPYRA [Concomitant]
     Indication: MULTIPLE SCLEROSIS
     Dosage: 10 MG, BID
     Dates: start: 20130301
  5. SPIRONOLACTONE [Concomitant]
  6. FLUTICASONE [Concomitant]
  7. OMEPRAZOLE [Concomitant]
  8. CAFFEINE [Concomitant]
  9. KETO [Concomitant]
  10. DIOVAN [Concomitant]

REACTIONS (1)
  - Drug ineffective [None]
